FAERS Safety Report 17102730 (Version 2)
Quarter: 2020Q1

REPORT INFORMATION
  Report Type: Spontaneous
  Country: US (occurrence: US)
  Receive Date: 20191203
  Receipt Date: 20200128
  Transmission Date: 20200409
  Serious: Yes (Other)
  Sender: FDA-Public Use
  Company Number: US-ROCHE-2484015

PATIENT
  Sex: Male

DRUGS (25)
  1. PREDNISONE. [Concomitant]
     Active Substance: PREDNISONE
  2. TESTOSTERONE. [Concomitant]
     Active Substance: TESTOSTERONE
  3. ZOCOR [Concomitant]
     Active Substance: SIMVASTATIN
  4. POTASSIUM CITRATE. [Concomitant]
     Active Substance: POTASSIUM CITRATE
  5. ASPIRIN [ACETYLSALICYLIC ACID] [Concomitant]
     Active Substance: ASPIRIN
  6. ASPIRIN. [Concomitant]
     Active Substance: ASPIRIN
  7. IBUPROFEN. [Concomitant]
     Active Substance: IBUPROFEN
  8. UROCIT-K [Concomitant]
     Active Substance: POTASSIUM CITRATE
  9. BUDESONIDE. [Concomitant]
     Active Substance: BUDESONIDE
  10. DIVALPROEX [Concomitant]
     Active Substance: DIVALPROEX SODIUM
  11. ELIQUIS [Concomitant]
     Active Substance: APIXABAN
  12. SOTALOL HCL [Concomitant]
     Active Substance: SOTALOL
  13. VIMPAT [Concomitant]
     Active Substance: LACOSAMIDE
  14. BENZONATATE. [Concomitant]
     Active Substance: BENZONATATE
  15. CARBAMAZEPINE. [Concomitant]
     Active Substance: CARBAMAZEPINE
  16. FUROSEMIDE. [Concomitant]
     Active Substance: FUROSEMIDE
  17. RANITIDINE. [Concomitant]
     Active Substance: RANITIDINE
  18. ATORVASTATIN [Concomitant]
     Active Substance: ATORVASTATIN
  19. ELIQUIS [Concomitant]
     Active Substance: APIXABAN
  20. MOMETASONE [Concomitant]
     Active Substance: MOMETASONE
  21. XOLAIR [Suspect]
     Active Substance: OMALIZUMAB
     Indication: STEVENS-JOHNSON SYNDROME
     Dosage: ONGOING
     Route: 058
     Dates: start: 20160120
  22. HYOSCYAMINE. [Concomitant]
     Active Substance: HYOSCYAMINE
  23. BREO ELLIPTA [Concomitant]
     Active Substance: FLUTICASONE FUROATE\VILANTEROL TRIFENATATE
  24. BRIVIACT [Concomitant]
     Active Substance: BRIVARACETAM
  25. MONTELUKAST [Concomitant]
     Active Substance: MONTELUKAST SODIUM

REACTIONS (4)
  - Cerebrovascular accident [Unknown]
  - Off label use [Unknown]
  - Hepatotoxicity [Unknown]
  - Intentional product use issue [Unknown]
